FAERS Safety Report 4545708-2 (Version None)
Quarter: 2005Q1

REPORT INFORMATION
  Report Type: 
  Country: None (occurrence: None)
  Receive Date: 20050103
  Receipt Date: 20050103
  Transmission Date: 20050727
  Serious: Yes (Hospitalization, Other)
  Sender: FDA-Public Use
  Company Number: None

PATIENT
  Sex: Male
  Weight: 91 kg

DRUGS (9)
  1. ETANERCEPT 25MG [Suspect]
     Indication: PSORIATIC ARTHROPATHY
     Dosage: 25MG SC BIW (MON + THURS)
     Route: 058
     Dates: start: 20030314, end: 20030701
  2. PREDNISONE [Concomitant]
  3. DARVOCET [Concomitant]
  4. APAP/ISOMETHEPTENENE/DICHLORALPHENAZONE [Concomitant]
  5. CYCLOBENZAPRINE [Concomitant]
  6. ESCITALOPRAM [Concomitant]
  7. CHLORZOXAZONE [Concomitant]
  8. CLONAZEPAM [Concomitant]
  9. CANNABIS [Concomitant]

REACTIONS (8)
  - ASTHENIA [None]
  - DEMYELINATION [None]
  - MEMORY IMPAIRMENT [None]
  - MENTAL STATUS CHANGES [None]
  - MOOD ALTERED [None]
  - NAUSEA [None]
  - PARAESTHESIA [None]
  - TREMOR [None]
